FAERS Safety Report 9786861 (Version 1)
Quarter: 2013Q4

REPORT INFORMATION
  Report Type: Spontaneous
  Country: NZ (occurrence: NZ)
  Receive Date: 20131227
  Receipt Date: 20131227
  Transmission Date: 20140711
  Serious: Yes (Hospitalization)
  Sender: FDA-Public Use
  Company Number: NZ-BAXTER-2013BAX052601

PATIENT
  Sex: Male

DRUGS (1)
  1. DIANEAL 137 (PD-1) SOLUTION WITH GLUCOSE (2.27%), DIALYSIS SOLUTION [Suspect]
     Indication: PERITONEAL DIALYSIS
     Route: 033

REACTIONS (1)
  - Accident [Unknown]
